FAERS Safety Report 9002495 (Version 1)
Quarter: 2013Q1

REPORT INFORMATION
  Report Type: Spontaneous
  Country: FR (occurrence: FR)
  Receive Date: 20130107
  Receipt Date: 20130107
  Transmission Date: 20140127
  Serious: Yes (Hospitalization)
  Sender: FDA-Public Use
  Company Number: FR-UCBSA-074237

PATIENT
  Age: 16 Year
  Sex: Female

DRUGS (1)
  1. KEPPRA [Suspect]
     Indication: EPILEPSY
     Route: 048
     Dates: end: 20121208

REACTIONS (6)
  - Depersonalisation [Not Recovered/Not Resolved]
  - Derealisation [Not Recovered/Not Resolved]
  - Palpitations [Unknown]
  - Hot flush [Unknown]
  - Asthenia [Unknown]
  - Malaise [Unknown]
